FAERS Safety Report 25919730 (Version 1)
Quarter: 2025Q4

REPORT INFORMATION
  Report Type: Spontaneous
  Country: US (occurrence: US)
  Receive Date: 20251014
  Receipt Date: 20251014
  Transmission Date: 20260117
  Serious: No
  Sender: BOTANIX PHARMACEUTICALS
  Company Number: US-BOTANIX PHARMACEUTICALS-2025BOT00229

PATIENT
  Age: 43 Year
  Sex: Female
  Weight: 58.967 kg

DRUGS (4)
  1. SOFDRA [Suspect]
     Active Substance: SOFPIRONIUM BROMIDE
     Indication: Hyperhidrosis
     Dosage: 0.75 DOSAGE FORM (APPROXIMATELY 3/4 PUMP)
     Route: 061
     Dates: start: 20250624, end: 20250624
  2. VITAMINS NOS [Concomitant]
     Active Substance: VITAMINS
  3. BIOTIN [Concomitant]
     Active Substance: BIOTIN
  4. COLLAGEN [Concomitant]
     Active Substance: COLLAGEN

REACTIONS (9)
  - Dysuria [Recovering/Resolving]
  - Urticaria [Recovered/Resolved]
  - Abdominal pain upper [Recovering/Resolving]
  - Nasal dryness [Recovered/Resolved]
  - Application site swelling [Not Recovered/Not Resolved]
  - Application site rash [Not Recovered/Not Resolved]
  - Dry mouth [Recovered/Resolved]
  - Vision blurred [Recovered/Resolved]
  - Intentional product misuse [Recovered/Resolved]

NARRATIVE: CASE EVENT DATE: 20250601
